FAERS Safety Report 6817790-0 (Version None)
Quarter: 2010Q3

REPORT INFORMATION
  Report Type: 
  Country: None (occurrence: None)
  Receive Date: 20100706
  Receipt Date: 20100622
  Transmission Date: 20110219
  Serious: Yes (Other)
  Sender: FDA-Public Use
  Company Number: US-JNJFOC-20100608187

PATIENT
  Sex: Female

DRUGS (1)
  1. TYLENOL COLD MEDICATION [Suspect]
     Indication: NASOPHARYNGITIS
     Route: 048

REACTIONS (5)
  - DEHYDRATION [None]
  - HYPOPHAGIA [None]
  - PYREXIA [None]
  - VOMITING [None]
  - WEIGHT DECREASED [None]
